FAERS Safety Report 25813021 (Version 1)
Quarter: 2025Q3

REPORT INFORMATION
  Report Type: Spontaneous
  Country: EU (occurrence: EU)
  Receive Date: 20250917
  Receipt Date: 20250917
  Transmission Date: 20251021
  Serious: Yes (Other)
  Sender: ASTELLAS
  Company Number: EU-ASTELLAS-2025-AER-050474

PATIENT
  Age: 66 Year
  Sex: Female

DRUGS (1)
  1. ENFORTUMAB VEDOTIN [Suspect]
     Active Substance: ENFORTUMAB VEDOTIN
     Indication: Transitional cell carcinoma metastatic
     Route: 065

REACTIONS (3)
  - Malignant neoplasm progression [Unknown]
  - Pathological fracture [Unknown]
  - Tibia fracture [Unknown]
